FAERS Safety Report 8953179 (Version 1)
Quarter: 2012Q4

REPORT INFORMATION
  Report Type: 
  Country: RU (occurrence: RU)
  Receive Date: 20121206
  Receipt Date: 20121206
  Transmission Date: 20130627
  Serious: Yes (Life-Threatening, Hospitalization)
  Sender: FDA-Public Use
  Company Number: RU-BAYER-2012-125184

PATIENT
  Sex: Female

DRUGS (1)
  1. MIRENA [Suspect]
     Indication: HYPERPLASIA ENDOMETRIAL
     Dosage: 20 mcg/24hr, CONT
     Route: 015
     Dates: start: 20081014, end: 201002

REACTIONS (2)
  - Ovarian cancer [None]
  - Flank pain [None]
